FAERS Safety Report 6223122-1 (Version None)
Quarter: 2009Q2

REPORT INFORMATION
  Report Type: 
  Country: None (occurrence: None)
  Receive Date: 20090609
  Receipt Date: 20090530
  Transmission Date: 20091009
  Serious: Yes (Death)
  Sender: FDA-Public Use
  Company Number: WAES 0905USA03840

PATIENT
  Age: 55 Year
  Sex: Female

DRUGS (15)
  1. INJ FOSAPREPITANT DIMEGLUMINE [Suspect]
     Indication: PROPHYLAXIS OF NAUSEA AND VOMITING
     Dosage: 150 MG/1X IV
     Route: 042
     Dates: start: 20090519, end: 20090519
  2. ONDANSETRON HCL [Suspect]
     Indication: PROPHYLAXIS OF NAUSEA AND VOMITING
     Dosage: 50 ML/1X IV
     Route: 042
     Dates: start: 20090519, end: 20090519
  3. PLACEBO (UNSPECIFIED) [Suspect]
     Indication: PROPHYLAXIS OF NAUSEA AND VOMITING
     Dosage: PO
     Route: 048
     Dates: start: 20090519, end: 20090519
  4. DEXAMETHASONE [Suspect]
     Indication: PROPHYLAXIS OF NAUSEA AND VOMITING
     Dosage: 20 MG/DAILY PO
     Route: 048
     Dates: start: 20090518, end: 20090519
  5. ISOLYTE M IN DEXTROSE [Concomitant]
  6. KESOL (POTASSIUM CHLORIDE) [Concomitant]
  7. MAGNESIUM SULFATE [Concomitant]
  8. ALBUMIN (HUMAN) [Concomitant]
  9. CISPLATIN [Concomitant]
  10. ELECTROLYTES (UNSPECIFIED) (+) SODIUM LA [Concomitant]
  11. FUROSEMIDE [Concomitant]
  12. MANNITOL [Concomitant]
  13. PACLITAXEL [Concomitant]
  14. PANTOPRAZOLE SODIUM [Concomitant]
  15. SODIUM CHLORIDE [Concomitant]

REACTIONS (6)
  - ASTHENIA [None]
  - BLOOD PRESSURE DECREASED [None]
  - GENERAL PHYSICAL HEALTH DETERIORATION [None]
  - INTESTINAL OBSTRUCTION [None]
  - OXYGEN SATURATION DECREASED [None]
  - SEPSIS [None]
